FAERS Safety Report 6913483-X (Version None)
Quarter: 2010Q3

REPORT INFORMATION
  Report Type: 
  Country: None (occurrence: None)
  Receive Date: 20100805
  Receipt Date: 20100805
  Transmission Date: 20110219
  Serious: Yes (Other)
  Sender: FDA-Public Use
  Company Number: None

PATIENT
  Sex: Male
  Weight: 99.7913 kg

DRUGS (1)
  1. WHITENING TOOTHPASTE COLGATE [Suspect]
     Indication: DENTAL CARE
     Dosage: 1/2 STRIP 2X DAY DENTAL
     Route: 004
     Dates: start: 20100802, end: 20100803

REACTIONS (3)
  - GINGIVAL BLEEDING [None]
  - IRRITABILITY [None]
  - MUCOSAL HAEMORRHAGE [None]
